FAERS Safety Report 5328459-6 (Version None)
Quarter: 2007Q2

REPORT INFORMATION
  Report Type: 
  Country: None (occurrence: None)
  Receive Date: 20070518
  Receipt Date: 20070507
  Transmission Date: 20071010
  Serious: Yes (Death, Other)
  Sender: FDA-Public Use
  Company Number: JP-PFIZER INC-2007026334

PATIENT

DRUGS (2)
  1. HALCION [Suspect]
     Route: 048
  2. ALCOHOL [Suspect]

REACTIONS (2)
  - INJURY ASPHYXIATION [None]
  - INTENTIONAL OVERDOSE [None]
